FAERS Safety Report 25019902 (Version 1)
Quarter: 2025Q1

REPORT INFORMATION
  Report Type: Spontaneous
  Country: US (occurrence: US)
  Receive Date: 20250227
  Receipt Date: 20250227
  Transmission Date: 20250408
  Serious: No
  Sender: ASCEND THERAPEUTICS US, LLC
  Company Number: US-Ascend Therapeutics US, LLC-2171874

PATIENT
  Sex: Male

DRUGS (17)
  1. ANDROGEL [Suspect]
     Active Substance: TESTOSTERONE
     Indication: Product used for unknown indication
  2. ANDROGEL [Suspect]
     Active Substance: TESTOSTERONE
  3. AMMONIUM LACTATE [Concomitant]
     Active Substance: AMMONIUM LACTATE
  4. CARISOPRODOL [Concomitant]
     Active Substance: CARISOPRODOL
  5. PREDNISONE [Concomitant]
     Active Substance: PREDNISONE
  6. EPINEPHRINE [Concomitant]
     Active Substance: EPINEPHRINE
  7. OXCARBAZEPINE [Concomitant]
     Active Substance: OXCARBAZEPINE
  8. VARDENAFIL [Concomitant]
     Active Substance: VARDENAFIL HYDROCHLORIDE
  9. SILDENAFIL [Concomitant]
     Active Substance: SILDENAFIL
  10. TRIAMCINOLONE [Concomitant]
     Active Substance: TRIAMCINOLONE
  11. SITAGLIPTIN [Concomitant]
     Active Substance: SITAGLIPTIN
  12. METFORMIN [Concomitant]
     Active Substance: METFORMIN HYDROCHLORIDE
  13. CIALIS [Concomitant]
     Active Substance: TADALAFIL
  14. CELEXA [Concomitant]
     Active Substance: CITALOPRAM HYDROBROMIDE
  15. BACTRIM [Concomitant]
     Active Substance: SULFAMETHOXAZOLE\TRIMETHOPRIM
  16. ASMANEX [Concomitant]
     Active Substance: MOMETASONE FUROATE
  17. ANASTROZOLE [Concomitant]
     Active Substance: ANASTROZOLE

REACTIONS (1)
  - Fatigue [Unknown]
